FAERS Safety Report 14113532 (Version 1)
Quarter: 2017Q4

REPORT INFORMATION
  Report Type: Spontaneous
  Country: US (occurrence: US)
  Receive Date: 20171022
  Receipt Date: 20171022
  Transmission Date: 20180321
  Serious: Yes (Death)
  Sender: FDA-Public Use
  Company Number: None

PATIENT
  Age: 60 Year
  Sex: Female
  Weight: 126 kg

DRUGS (1)
  1. KCENTRA [Suspect]
     Active Substance: COAGULATION FACTOR IX HUMAN\COAGULATION FACTOR VII HUMAN\COAGULATION FACTOR X HUMAN\PROTEIN C\PROTEIN S HUMAN\PROTHROMBIN
     Indication: PROCOAGULANT THERAPY
     Dosage: ?          OTHER FREQUENCY:ONE TIME;?
     Route: 042
     Dates: start: 20171014, end: 20171014

REACTIONS (9)
  - Urinary incontinence [None]
  - Haemoglobin decreased [None]
  - Unresponsive to stimuli [None]
  - International normalised ratio increased [None]
  - Ventricular fibrillation [None]
  - Haematochezia [None]
  - Cardio-respiratory arrest [None]
  - Dyspnoea [None]
  - Pulse absent [None]

NARRATIVE: CASE EVENT DATE: 20171017
